FAERS Safety Report 11288885 (Version 1)
Quarter: 2015Q3

REPORT INFORMATION
  Report Type: Spontaneous
  Country: GB (occurrence: GB)
  Receive Date: 20150721
  Receipt Date: 20150721
  Transmission Date: 20151125
  Serious: Yes (Life-Threatening)
  Sender: FDA-Public Use
  Company Number: GB-REGENERON PHARMACEUTICALS, INC.-2015-11779

PATIENT

DRUGS (6)
  1. SIMVASTATIN. [Concomitant]
     Active Substance: SIMVASTATIN
  2. PARACETAMOL [Concomitant]
     Active Substance: ACETAMINOPHEN
  3. ASPIRIN                            /00002701/ [Concomitant]
     Active Substance: ASPIRIN
  4. OXYBUTYNIN [Concomitant]
     Active Substance: OXYBUTYNIN
  5. EYLEA [Suspect]
     Active Substance: AFLIBERCEPT
     Indication: AGE-RELATED MACULAR DEGENERATION
     Dosage: UNK
     Route: 031
     Dates: start: 20150317, end: 20150430
  6. LATANOPROST. [Concomitant]
     Active Substance: LATANOPROST

REACTIONS (3)
  - Neutrophil count decreased [Not Recovered/Not Resolved]
  - Arthralgia [Not Recovered/Not Resolved]
  - Malaise [Not Recovered/Not Resolved]

NARRATIVE: CASE EVENT DATE: 20150610
